FAERS Safety Report 5400366-X (Version None)
Quarter: 2007Q3

REPORT INFORMATION
  Report Type: 
  Country: None (occurrence: None)
  Receive Date: 20070730
  Receipt Date: 20070724
  Transmission Date: 20080115
  Serious: Yes (Life-Threatening)
  Sender: FDA-Public Use
  Company Number: B0472458A

PATIENT
  Age: 82 Year
  Sex: Female
  Weight: 37 kg

DRUGS (19)
  1. REQUIP [Suspect]
     Indication: PARKINSON'S DISEASE
     Route: 048
     Dates: start: 20070308, end: 20070523
  2. EVAMYL [Concomitant]
     Route: 048
  3. CLARITHROMYCIN [Concomitant]
     Indication: INFECTION PROPHYLAXIS
     Dosage: 400MG PER DAY
     Route: 048
  4. OMEPRAZOLE [Concomitant]
     Dosage: 10MG PER DAY
     Route: 048
  5. ONEALFA [Concomitant]
     Indication: OSTEOPOROSIS
     Dosage: .5MCG PER DAY
     Route: 048
  6. METHYCOBAL [Concomitant]
     Indication: NERVE INJURY
     Dosage: 1500MCG PER DAY
     Route: 048
  7. GASMOTIN [Concomitant]
     Dosage: 15MG PER DAY
     Route: 048
  8. URSO 250 [Concomitant]
     Indication: CHOLELITHIASIS
     Dosage: 300MG PER DAY
     Route: 048
  9. BIOFERMIN R [Concomitant]
     Dosage: 3G PER DAY
     Route: 048
  10. TANNALBIN [Concomitant]
     Dosage: 3G PER DAY
     Route: 048
  11. TOLEDOMIN [Concomitant]
     Indication: DEPRESSION
     Route: 048
  12. SYMMETREL [Concomitant]
     Indication: PARKINSON'S DISEASE
     Dosage: 200MG PER DAY
     Route: 048
  13. EC DOPARL [Concomitant]
     Route: 048
  14. FOIPAN [Concomitant]
     Dosage: 300MG PER DAY
     Route: 048
  15. NEUQUINON [Concomitant]
     Route: 048
  16. SERMION [Concomitant]
     Indication: DRUG USE FOR UNKNOWN INDICATION
     Dosage: 15MG PER DAY
     Route: 048
  17. MUCOSTA [Concomitant]
     Indication: GASTRITIS
     Dosage: 300MG PER DAY
     Route: 048
  18. NIVADIL [Concomitant]
     Indication: HYPERTENSION
     Dosage: 4MG PER DAY
     Route: 048
  19. COSPANON [Concomitant]
     Indication: CHOLELITHIASIS
     Dosage: 120MG PER DAY
     Route: 048

REACTIONS (3)
  - DYSPNOEA [None]
  - INTERSTITIAL LUNG DISEASE [None]
  - PYREXIA [None]
